FAERS Safety Report 9957841 (Version 2)
Quarter: 2014Q1

REPORT INFORMATION
  Report Type: Report from Study
  Country: US (occurrence: US)
  Receive Date: 20140304
  Receipt Date: 20140304
  Transmission Date: 20141002
  Serious: No
  Sender: FDA-Public Use
  Company Number: US-ABBVIE-13P-163-1058214-00

PATIENT
  Age: 54 Year
  Sex: Female

DRUGS (13)
  1. HUMIRA [Suspect]
     Indication: CROHN^S DISEASE
     Dates: start: 20130214, end: 20130214
  2. HUMIRA [Suspect]
     Dates: start: 20130228, end: 20130228
  3. HUMIRA [Suspect]
  4. LISINOPRIL [Concomitant]
     Indication: HYPERTENSION
     Route: 048
  5. ASACOL [Concomitant]
     Indication: PRODUCT USED FOR UNKNOWN INDICATION
     Route: 048
  6. IMODIUM [Concomitant]
     Indication: PRODUCT USED FOR UNKNOWN INDICATION
     Route: 048
  7. MERCAPTOPURINE [Concomitant]
     Indication: PRODUCT USED FOR UNKNOWN INDICATION
     Route: 048
  8. LORAZEPAM A [Concomitant]
     Indication: ANXIETY
     Route: 048
  9. FEXOFENADINE [Concomitant]
     Indication: HYPERSENSITIVITY
     Route: 048
  10. ADVAIR [Concomitant]
     Indication: HYPERSENSITIVITY
     Dosage: 250/50 MG
  11. NASONEX [Concomitant]
     Indication: HYPERSENSITIVITY
  12. PREMARIN [Concomitant]
     Indication: HORMONE REPLACEMENT THERAPY
  13. LEXAPRO [Concomitant]
     Indication: DEPRESSION

REACTIONS (17)
  - Inappropriate schedule of drug administration [Not Recovered/Not Resolved]
  - Injection site erythema [Not Recovered/Not Resolved]
  - Injection site erythema [Not Recovered/Not Resolved]
  - Arthralgia [Not Recovered/Not Resolved]
  - Injection site haemorrhage [Not Recovered/Not Resolved]
  - Injection site pain [Not Recovered/Not Resolved]
  - Injection site pain [Not Recovered/Not Resolved]
  - Drug ineffective [Not Recovered/Not Resolved]
  - Fistula [Not Recovered/Not Resolved]
  - Vaginal disorder [Not Recovered/Not Resolved]
  - Vaginal flatulence [Not Recovered/Not Resolved]
  - Vaginal discharge [Not Recovered/Not Resolved]
  - Vaginal fistula [Not Recovered/Not Resolved]
  - Crohn^s disease [Not Recovered/Not Resolved]
  - Pyrexia [Not Recovered/Not Resolved]
  - Bacterial test positive [Not Recovered/Not Resolved]
  - Fistula discharge [Recovered/Resolved]
